FAERS Safety Report 9518600 (Version 2)
Quarter: 2013Q4

REPORT INFORMATION
  Report Type: Report from Study
  Country: BR (occurrence: BR)
  Receive Date: 20130912
  Receipt Date: 20131114
  Transmission Date: 20140711
  Serious: Yes (Hospitalization, Other)
  Sender: FDA-Public Use
  Company Number: PHHY2013BR100130

PATIENT
  Age: 79 Year
  Sex: Female
  Weight: 88 kg

DRUGS (14)
  1. EXELON [Suspect]
     Indication: DEMENTIA ALZHEIMER^S TYPE
     Dosage: ONE CAPSULE DAILY
     Route: 048
  2. EXELON [Suspect]
     Dosage: THREE CAPSULES DAILY
     Route: 048
  3. ACTOS [Concomitant]
     Indication: DIABETES MELLITUS
     Dosage: 1 DF, DAILY
     Route: 048
  4. PURAN T4 [Concomitant]
     Indication: THYROID DISORDER
     Dosage: 3 DF, DAILY
     Route: 048
  5. EFEXOR XR [Concomitant]
     Indication: DEPRESSION
     Dosage: 225 MG, QD ( 150 MG AT THE MORNING, 75 MG AT NIGHT)
     Route: 048
  6. GLUCOVANCE [Concomitant]
     Indication: DIABETES MELLITUS
     Dosage: 2 DF, QD (2 TABLETS, AT NIGHT)
     Route: 048
  7. ROCALTROL [Concomitant]
     Dosage: 1 DF, DAILY
     Route: 048
  8. CARBONATO DE CALCIO [Concomitant]
     Dosage: 1 DF, DAILY
     Route: 048
  9. NOVOLIN N [Concomitant]
     Indication: DIABETES MELLITUS
     Dosage: 60 IU, DAILY ( 40 IU IN THE MORNING, 20 IU AT NIGHT)
     Route: 058
  10. RENITEC M [Concomitant]
     Dosage: 2 DF, DAILY
     Route: 048
  11. CRESTOR [Concomitant]
     Dosage: 1 DF, DAILY
     Route: 048
  12. LIPITOR [Concomitant]
     Indication: BLOOD CHOLESTEROL
     Dosage: 1 DF, DAILY
     Route: 048
  13. SEROQUEL [Concomitant]
     Indication: DEPRESSION
     Dosage: 2 DF, QD ( 2 TABLETS, AT NIGHT)
     Route: 048
  14. SEROQUEL [Concomitant]
     Indication: SLEEP DISORDER

REACTIONS (6)
  - Pneumonia [Recovered/Resolved]
  - Blood pressure fluctuation [Recovered/Resolved]
  - Blood glucose fluctuation [Recovered/Resolved]
  - Bronchitis [Recovered/Resolved]
  - Influenza [Recovered/Resolved]
  - Asthenia [Recovered/Resolved]
